FAERS Safety Report 18758159 (Version 1)
Quarter: 2021Q1

REPORT INFORMATION
  Report Type: Report from Study
  Country: US (occurrence: US)
  Receive Date: 20210119
  Receipt Date: 20210119
  Transmission Date: 20210419
  Serious: Yes (Hospitalization)
  Sender: FDA-Public Use
  Company Number: US-TAKEDA-US202012731

PATIENT
  Age: 60 Year
  Sex: Male

DRUGS (8)
  1. TEDUGLUTIDE [Suspect]
     Active Substance: TEDUGLUTIDE
     Indication: CROHN^S DISEASE
     Dosage: 0.294 MILLILITER, QD
     Route: 058
     Dates: start: 20170217
  2. TEDUGLUTIDE [Suspect]
     Active Substance: TEDUGLUTIDE
     Indication: CROHN^S DISEASE
     Dosage: 0.294 MILLILITER, QD
     Route: 058
     Dates: start: 20170217
  3. TEDUGLUTIDE [Suspect]
     Active Substance: TEDUGLUTIDE
     Indication: CROHN^S DISEASE
     Dosage: 0.294 MILLILITER, QD
     Route: 058
     Dates: start: 20170217
  4. TEDUGLUTIDE [Suspect]
     Active Substance: TEDUGLUTIDE
     Dosage: 0.294 UNK
     Route: 058
     Dates: start: 20170221
  5. TEDUGLUTIDE [Suspect]
     Active Substance: TEDUGLUTIDE
     Dosage: 0.294 UNK
     Route: 058
     Dates: start: 20170221
  6. TEDUGLUTIDE [Suspect]
     Active Substance: TEDUGLUTIDE
     Indication: CROHN^S DISEASE
     Dosage: 0.294 MILLILITER, QD
     Route: 058
     Dates: start: 20170217
  7. TEDUGLUTIDE [Suspect]
     Active Substance: TEDUGLUTIDE
     Dosage: 0.294 UNK
     Route: 058
     Dates: start: 20170221
  8. TEDUGLUTIDE [Suspect]
     Active Substance: TEDUGLUTIDE
     Dosage: 0.294 UNK
     Route: 058
     Dates: start: 20170221

REACTIONS (2)
  - Product dose omission issue [Not Recovered/Not Resolved]
  - Hospitalisation [Unknown]

NARRATIVE: CASE EVENT DATE: 20201111
